FAERS Safety Report 11690150 (Version 1)
Quarter: 2015Q4

REPORT INFORMATION
  Report Type: Spontaneous
  Country: US (occurrence: None)
  Receive Date: 20151030
  Receipt Date: 20151030
  Transmission Date: 20160304
  Serious: Yes (Disabling, Other)
  Sender: FDA-Public Use
  Company Number: None

PATIENT
  Age: 33 Year
  Sex: Female
  Weight: 61.24 kg

DRUGS (4)
  1. IRON SUPPLEMENT [Concomitant]
     Active Substance: IRON
  2. ZOLOFT [Concomitant]
     Active Substance: SERTRALINE HYDROCHLORIDE
  3. PARAGARD T 380A [Suspect]
     Active Substance: COPPER
     Indication: CONTRACEPTION
     Dosage: IMPLANTED, VAGINAL
     Route: 067
     Dates: start: 20130301, end: 20151028
  4. MULTI VITAMIN [Concomitant]
     Active Substance: VITAMINS

REACTIONS (6)
  - Fatigue [None]
  - Bipolar I disorder [None]
  - Thinking abnormal [None]
  - Suicidal ideation [None]
  - Impaired work ability [None]
  - Metal poisoning [None]

NARRATIVE: CASE EVENT DATE: 20151029
